FAERS Safety Report 15279933 (Version 1)
Quarter: 2018Q3

REPORT INFORMATION
  Report Type: Spontaneous
  Country: US (occurrence: US)
  Receive Date: 20180815
  Receipt Date: 20180815
  Transmission Date: 20181010
  Serious: Yes (Death)
  Sender: FDA-Public Use
  Company Number: PHEH2018US033499

PATIENT
  Sex: Female

DRUGS (1)
  1. VOTRIENT [Suspect]
     Active Substance: PAZOPANIB HYDROCHLORIDE
     Indication: COLON NEOPLASM
     Dosage: 400 MG, QD
     Route: 048
     Dates: start: 20180731

REACTIONS (2)
  - Death [Fatal]
  - Product use in unapproved indication [Unknown]
